FAERS Safety Report 17623255 (Version 2)
Quarter: 2020Q3

REPORT INFORMATION
  Report Type: Spontaneous
  Country: US (occurrence: US)
  Receive Date: 20200403
  Receipt Date: 20200818
  Transmission Date: 20201102
  Serious: Yes (Other)
  Sender: FDA-Public Use
  Company Number: US-GILEAD-2020-0456527

PATIENT
  Age: 56 Year
  Sex: Male
  Weight: 164 kg

DRUGS (38)
  1. BUPROPION HYDROCHLORIDE XL [Concomitant]
     Active Substance: BUPROPION HYDROCHLORIDE
     Indication: DEPRESSION
     Dosage: UNK
     Route: 065
     Dates: start: 2013
  2. SUPREP BOWEL PREP [Concomitant]
     Active Substance: MAGNESIUM SULFATE\POTASSIUM SULFATE\SODIUM SULFATE
     Indication: PRODUCT USED FOR UNKNOWN INDICATION
     Route: 065
  3. CYCLOSPORINE. [Concomitant]
     Active Substance: CYCLOSPORINE
     Indication: PRODUCT USED FOR UNKNOWN INDICATION
     Route: 065
  4. SEROSTIM [Concomitant]
     Active Substance: SOMATROPIN
     Indication: PRODUCT USED FOR UNKNOWN INDICATION
     Route: 065
  5. ACETAMINOPHEN AND CODEINE [Concomitant]
     Active Substance: ACETAMINOPHEN\CODEINE PHOSPHATE
     Indication: PAIN
     Dosage: UNK
     Route: 065
  6. OXYCODONE AND ACETAMINOPHEN [Concomitant]
     Active Substance: ACETAMINOPHEN\OXYCODONE HYDROCHLORIDE
     Indication: PAIN
     Dosage: UNK
     Route: 065
     Dates: start: 20161024
  7. OXYCODONE AND ACETAMINOPHEN [Concomitant]
     Active Substance: ACETAMINOPHEN\OXYCODONE HYDROCHLORIDE
     Indication: SKELETAL INJURY
  8. ASPIRIN (E.C.) [Concomitant]
     Active Substance: ASPIRIN
     Indication: PAIN
     Dosage: UNK UNK, PRN
     Route: 065
  9. LOVENOX [Concomitant]
     Active Substance: ENOXAPARIN SODIUM
     Indication: PRODUCT USED FOR UNKNOWN INDICATION
     Dosage: UNK
     Route: 065
     Dates: start: 20200503, end: 20200530
  10. DOXYCYCLINE HYCLATE. [Concomitant]
     Active Substance: DOXYCYCLINE HYCLATE
     Indication: PRODUCT USED FOR UNKNOWN INDICATION
     Route: 065
  11. DENTA 5000 PLUS [Concomitant]
     Active Substance: SODIUM FLUORIDE
     Indication: PRODUCT USED FOR UNKNOWN INDICATION
     Route: 065
  12. HYDROCODONE/ACETAMINOPHEN [Concomitant]
     Active Substance: ACETAMINOPHEN\HYDROCODONE
     Indication: PRODUCT USED FOR UNKNOWN INDICATION
     Route: 065
  13. ACYCLOVIR [ACICLOVIR] [Concomitant]
     Active Substance: ACYCLOVIR
     Indication: PRODUCT USED FOR UNKNOWN INDICATION
     Route: 065
  14. BUPROPION HYDROCHLORIDE XL [Concomitant]
     Active Substance: BUPROPION HYDROCHLORIDE
     Indication: ANXIETY
  15. DESONIDE. [Concomitant]
     Active Substance: DESONIDE
     Indication: PRODUCT USED FOR UNKNOWN INDICATION
     Route: 065
  16. AZITHROMYCIN ANHYDROUS. [Concomitant]
     Active Substance: AZITHROMYCIN ANHYDROUS
     Indication: PRODUCT USED FOR UNKNOWN INDICATION
     Route: 065
  17. CLOTRIMAZOLE AND BETAMETHASONE [Concomitant]
     Active Substance: BETAMETHASONE\CLOTRIMAZOLE
     Indication: PRODUCT USED FOR UNKNOWN INDICATION
     Route: 065
  18. BUTRANS [Concomitant]
     Active Substance: BUPRENORPHINE
     Indication: PRODUCT USED FOR UNKNOWN INDICATION
     Route: 065
  19. FLUOROMETHOLONE. [Concomitant]
     Active Substance: FLUOROMETHOLONE
     Indication: PRODUCT USED FOR UNKNOWN INDICATION
     Route: 065
  20. CYMBALTA [Concomitant]
     Active Substance: DULOXETINE HYDROCHLORIDE
     Indication: DEPRESSION
     Dosage: UNK
     Route: 065
     Dates: start: 2013
  21. ALLOPURINOL. [Concomitant]
     Active Substance: ALLOPURINOL
     Indication: PRODUCT USED FOR UNKNOWN INDICATION
     Route: 065
  22. TRAZODONE [Concomitant]
     Active Substance: TRAZODONE HYDROCHLORIDE
     Indication: PRODUCT USED FOR UNKNOWN INDICATION
     Route: 065
  23. BACTRIM [Concomitant]
     Active Substance: SULFAMETHOXAZOLE\TRIMETHOPRIM
     Indication: URINARY TRACT INFECTION
     Dosage: UNK
     Route: 065
     Dates: start: 201904, end: 201905
  24. KETOCONAZOLE. [Concomitant]
     Active Substance: KETOCONAZOLE
     Indication: PRODUCT USED FOR UNKNOWN INDICATION
     Route: 065
  25. HYDROMORPHONE HCL [Concomitant]
     Active Substance: HYDROMORPHONE HYDROCHLORIDE
     Indication: PRODUCT USED FOR UNKNOWN INDICATION
     Route: 065
  26. PREDNISONE. [Concomitant]
     Active Substance: PREDNISONE
     Indication: PRODUCT USED FOR UNKNOWN INDICATION
     Route: 065
  27. VITAMIN D2 [Concomitant]
     Active Substance: ERGOCALCIFEROL
     Indication: SKELETAL INJURY
     Dosage: UNK
     Route: 065
     Dates: start: 201701
  28. PRIVIGEN [Concomitant]
     Active Substance: HUMAN IMMUNOGLOBULIN G
     Indication: PRODUCT USED FOR UNKNOWN INDICATION
     Route: 065
  29. HEPARIN [Concomitant]
     Active Substance: HEPARIN SODIUM
     Indication: PRODUCT USED FOR UNKNOWN INDICATION
     Dosage: UNK
     Route: 065
     Dates: start: 20200503, end: 20200530
  30. AMOXICILLIN AND CLAVULANATE POTASSIU. [Concomitant]
     Active Substance: AMOXICILLIN\CLAVULANATE POTASSIUM
     Indication: PRODUCT USED FOR UNKNOWN INDICATION
     Route: 065
  31. COMPLERA [Suspect]
     Active Substance: EMTRICITABINE\RILPIVIRINE HYDROCHLORIDE\TENOFOVIR DISOPROXIL FUMARATE
     Indication: HIV INFECTION
     Dosage: UNK
     Route: 048
     Dates: start: 20131226, end: 201904
  32. ATRIPLA [Suspect]
     Active Substance: EFAVIRENZ\EMTRICITABINE\TENOFOVIR DISOPROXIL FUMARATE
     Indication: HIV INFECTION
     Dosage: UNK
     Route: 048
     Dates: start: 200607, end: 20131226
  33. ODEFSEY [Concomitant]
     Active Substance: EMTRICITABINE\RILPIVIRINE HYDROCHLORIDE\TENOFOVIR ALAFENAMIDE FUMARATE
     Indication: HIV INFECTION
     Route: 065
  34. CYMBALTA [Concomitant]
     Active Substance: DULOXETINE HYDROCHLORIDE
     Indication: ANXIETY
  35. VALACYCLOVIR [Concomitant]
     Active Substance: VALACYCLOVIR HYDROCHLORIDE
     Indication: PRODUCT USED FOR UNKNOWN INDICATION
     Route: 065
  36. CLINDAMYCIN HCL [Concomitant]
     Active Substance: CLINDAMYCIN HYDROCHLORIDE
     Indication: PRODUCT USED FOR UNKNOWN INDICATION
     Route: 065
  37. CHLORHEXIDINE GLUCONATE. [Concomitant]
     Active Substance: CHLORHEXIDINE GLUCONATE
     Indication: PRODUCT USED FOR UNKNOWN INDICATION
     Route: 065
  38. ESOMEPRAZOLE. [Concomitant]
     Active Substance: ESOMEPRAZOLE MAGNESIUM
     Indication: GASTROOESOPHAGEAL REFLUX DISEASE
     Dosage: UNK
     Route: 065
     Dates: start: 2010, end: 2010

REACTIONS (14)
  - Anxiety [Not Recovered/Not Resolved]
  - Pain [Not Recovered/Not Resolved]
  - Decreased appetite [Not Recovered/Not Resolved]
  - Osteoarthritis [Unknown]
  - Depression [Not Recovered/Not Resolved]
  - Asthenia [Not Recovered/Not Resolved]
  - Osteoporosis [Not Recovered/Not Resolved]
  - Upper limb fracture [Unknown]
  - Osteopenia [Not Recovered/Not Resolved]
  - Fracture [Not Recovered/Not Resolved]
  - Compression fracture [Unknown]
  - Patella fracture [Unknown]
  - Chondromalacia [Unknown]
  - Disturbance in attention [Not Recovered/Not Resolved]

NARRATIVE: CASE EVENT DATE: 2012
